FAERS Safety Report 15223379 (Version 1)
Quarter: 2018Q3

REPORT INFORMATION
  Report Type: Spontaneous
  Country: US (occurrence: US)
  Receive Date: 20180731
  Receipt Date: 20180731
  Transmission Date: 20181010
  Serious: Yes (Hospitalization, Other)
  Sender: FDA-Public Use
  Company Number: US-FRESENIUS KABI-FK201808207

PATIENT
  Age: 34 Year
  Sex: Female

DRUGS (4)
  1. INSULIN [Suspect]
     Active Substance: INSULIN NOS
     Indication: DIABETIC KETOACIDOSIS
  2. SODIUM CHLORIDE (MANUFACTURER UNKNOWN) [Suspect]
     Active Substance: SODIUM CHLORIDE
     Indication: DIABETIC KETOACIDOSIS
  3. SODIUM CHLORIDE (MANUFACTURER UNKNOWN) [Suspect]
     Active Substance: SODIUM CHLORIDE
     Indication: HYPERGLYCAEMIA
     Route: 065
  4. INSULIN [Suspect]
     Active Substance: INSULIN NOS
     Indication: HYPERGLYCAEMIA
     Route: 042

REACTIONS (7)
  - Exophthalmos [Unknown]
  - Conjunctival oedema [Unknown]
  - Cavernous sinus thrombosis [Unknown]
  - Blindness [Not Recovered/Not Resolved]
  - Eye swelling [Unknown]
  - Eyelid oedema [Unknown]
  - Pupillary disorder [Unknown]
